FAERS Safety Report 8478390-2 (Version None)
Quarter: 2012Q2

REPORT INFORMATION
  Report Type: 
  Country: None (occurrence: None)
  Receive Date: 20120629
  Receipt Date: 20120621
  Transmission Date: 20120825
  Serious: Yes (Disabling, Other)
  Sender: FDA-Public Use
  Company Number: US-B.I. PHARMACEUTICALS,INC./RIDGEFIELD-2012-BP-14221BP

PATIENT
  Age: 83 Year
  Sex: Male

DRUGS (2)
  1. PRADAXA [Suspect]
     Dosage: 150 MG
     Route: 048
  2. PRADAXA [Suspect]
     Dosage: 300 MG
     Route: 048
     Dates: start: 20120101

REACTIONS (1)
  - CEREBROVASCULAR ACCIDENT [None]
